FAERS Safety Report 6235281-5 (Version None)
Quarter: 2009Q2

REPORT INFORMATION
  Report Type: 
  Country: None (occurrence: None)
  Receive Date: 20090618
  Receipt Date: 20090606
  Transmission Date: 20091009
  Serious: Yes (Other)
  Sender: FDA-Public Use
  Company Number: US-JNJCH-2009016530

PATIENT
  Sex: Female

DRUGS (2)
  1. SUDAFED 12 HOUR [Suspect]
     Indication: DRUG USE FOR UNKNOWN INDICATION
     Dosage: TEXT:ONE
     Route: 048
  2. TOPROL-XL [Concomitant]
     Indication: HEART RATE INCREASED
     Dosage: TEXT:UNSPECIFIED
     Route: 048

REACTIONS (1)
  - HEART RATE INCREASED [None]
